FAERS Safety Report 7365656-2 (Version None)
Quarter: 2011Q1

REPORT INFORMATION
  Report Type: 
  Country: None (occurrence: None)
  Receive Date: 20110322
  Receipt Date: 20100928
  Transmission Date: 20110831
  Serious: Yes (Hospitalization, Other)
  Sender: FDA-Public Use
  Company Number: US-BAYER-201034803NA

PATIENT
  Sex: Female
  Weight: 111 kg

DRUGS (6)
  1. YASMIN [Suspect]
  2. RANITIDINE [Concomitant]
     Dosage: 150 MG, UNK
     Route: 048
  3. YAZ [Suspect]
     Indication: ACNE
  4. ALPRAZOLAM [Concomitant]
     Dosage: 1 MG, UNK
     Route: 048
  5. YASMIN [Suspect]
     Indication: ACNE
  6. SERTRALINE HYDROCHLORIDE [Concomitant]
     Dosage: 50 MG, UNK
     Route: 048

REACTIONS (6)
  - CHOLECYSTITIS CHRONIC [None]
  - HIATUS HERNIA [None]
  - DIZZINESS [None]
  - HYPERHIDROSIS [None]
  - VOMITING [None]
  - INJURY [None]
